FAERS Safety Report 9098468 (Version 1)
Quarter: 2013Q1

REPORT INFORMATION
  Report Type: Report from Study
  Country: MX (occurrence: MX)
  Receive Date: 20130213
  Receipt Date: 20130213
  Transmission Date: 20140127
  Serious: Yes (Death, Hospitalization, Other)
  Sender: FDA-Public Use
  Company Number: PHHY2012MX109330

PATIENT
  Age: 61 Year
  Sex: Female
  Weight: 104 kg

DRUGS (6)
  1. EVEROLIMUS [Suspect]
     Indication: BREAST CANCER
     Dosage: 10 MG, QD
     Route: 048
     Dates: start: 20121002, end: 20121026
  2. EXEMESTANE [Suspect]
     Indication: BREAST CANCER
     Dosage: 20 MG, UNK
     Dates: start: 20121002, end: 20121026
  3. METFORMIN [Concomitant]
     Indication: DIABETES MELLITUS
  4. LOSARTAN [Concomitant]
     Indication: HYPERTENSION
     Dosage: 50 M 1 TB
  5. GLIBENCLAMIDE [Concomitant]
     Indication: DIABETES MELLITUS
  6. ZANEDIP [Concomitant]
     Indication: HYPERTENSION

REACTIONS (10)
  - Multi-organ failure [Fatal]
  - Urinary tract infection [Unknown]
  - Platelet count decreased [Recovered/Resolved]
  - Pain in extremity [Unknown]
  - Hyperglycaemia [Recovered/Resolved]
  - Confusional state [Unknown]
  - Altered state of consciousness [Unknown]
  - Asthenia [Unknown]
  - Decreased appetite [Unknown]
  - Aggression [Unknown]
